FAERS Safety Report 8289666-6 (Version None)
Quarter: 2012Q2

REPORT INFORMATION
  Report Type: 
  Country: None (occurrence: None)
  Receive Date: 20120417
  Receipt Date: 20120410
  Transmission Date: 20120825
  Serious: Yes (Other)
  Sender: FDA-Public Use
  Company Number: BR-BAYER-2012-035369

PATIENT
  Sex: Female

DRUGS (2)
  1. ESTRADIOL VALERATE/DIENOGEST [Suspect]
     Indication: MENSTRUAL CYCLE MANAGEMENT
  2. ESTRADIOL VALERATE/DIENOGEST [Suspect]
     Indication: CONTRACEPTION
     Dosage: UNK
     Route: 048
     Dates: start: 20120101, end: 20120301

REACTIONS (1)
  - HEADACHE [None]
